FAERS Safety Report 9771902 (Version 2)
Quarter: 2013Q4

REPORT INFORMATION
  Report Type: Spontaneous
  Country: CA (occurrence: CA)
  Receive Date: 20131219
  Receipt Date: 20131227
  Transmission Date: 20140711
  Serious: Yes (Other)
  Sender: FDA-Public Use
  Company Number: CA-AMGEN-CANSP2013087873

PATIENT
  Age: 78 Year
  Sex: Female
  Weight: 79.37 kg

DRUGS (19)
  1. PROLIA [Suspect]
     Indication: OSTEOPOROSIS POSTMENOPAUSAL
     Dosage: 60 MG/ML, Q6MO
     Route: 065
     Dates: start: 20131125
  2. CIPRO                              /00697201/ [Concomitant]
     Dosage: 500 MG, UNK
     Route: 065
  3. SEPTRA DS [Concomitant]
     Route: 065
  4. CRESTOR [Concomitant]
     Dosage: 10 MG, UNK
     Route: 065
  5. FLU [Concomitant]
     Route: 065
  6. ACTONEL [Concomitant]
     Dosage: 35 MG, UNK
     Route: 065
  7. PREDNISONE [Concomitant]
     Dosage: 50 MG, UNK
     Route: 065
  8. CLOXACILLIN [Concomitant]
     Dosage: 500 MG, UNK
     Route: 065
  9. KEFLEX                             /00145501/ [Concomitant]
     Dosage: 250 MG, UNK
  10. ASA [Concomitant]
     Dosage: 81 MG, UNK
     Route: 065
  11. CALCIUM CARBONATE [Concomitant]
     Dosage: 600 MG, UNK
     Route: 048
  12. ARTHROTEC [Concomitant]
     Dosage: 75 UNK, UNK
     Route: 065
  13. DETROL [Concomitant]
     Dosage: 2 MG, UNK
     Route: 065
  14. PANTOLOC                           /01263204/ [Concomitant]
     Dosage: 40 MG, UNK
     Route: 065
  15. LEVOTHYROXINE SODIUM [Concomitant]
     Route: 048
  16. COLACE [Concomitant]
     Route: 065
  17. SENOKOT                            /00142201/ [Concomitant]
     Route: 065
  18. ATORVASTATIN [Concomitant]
     Dosage: 20 MG, UNK
     Route: 065
  19. NORVASC [Concomitant]
     Route: 065

REACTIONS (11)
  - Loss of consciousness [Recovered/Resolved]
  - Dizziness [Recovered/Resolved]
  - Syncope [Recovered/Resolved]
  - Fall [Unknown]
  - Hypertension [Unknown]
  - Contusion [Unknown]
  - Pain [Unknown]
  - Joint swelling [Not Recovered/Not Resolved]
  - Joint injury [Unknown]
  - Arthralgia [Not Recovered/Not Resolved]
  - Malaise [Recovered/Resolved]
